FAERS Safety Report 5299801-X (Version None)
Quarter: 2007Q2

REPORT INFORMATION
  Report Type: 
  Country: None (occurrence: None)
  Receive Date: 20070417
  Receipt Date: 20070411
  Transmission Date: 20071010
  Serious: Yes (Death)
  Sender: FDA-Public Use
  Company Number: US-PFIZER INC-2007029621

PATIENT
  Sex: Female

DRUGS (3)
  1. CELEBREX [Suspect]
     Dates: start: 20010101, end: 20040101
  2. BEXTRA [Suspect]
     Dates: start: 20010101, end: 20040101
  3. VIOXX [Suspect]
     Dates: start: 20000101, end: 20040101

REACTIONS (1)
  - MYOCARDIAL INFARCTION [None]
